FAERS Safety Report 4477858-3 (Version None)
Quarter: 2004Q4

REPORT INFORMATION
  Report Type: 
  Country: None (occurrence: None)
  Receive Date: 20041014
  Receipt Date: 20040929
  Transmission Date: 20050328
  Serious: No
  Sender: FDA-Public Use
  Company Number: 2004AP05049

PATIENT
  Age: 71 Year
  Sex: Male
  Weight: 72.2 kg

DRUGS (3)
  1. OMEPRAL [Suspect]
     Indication: GASTRIC ULCER HAEMORRHAGE
     Dosage: 20 MG DAILY PO
     Route: 048
     Dates: start: 20030707, end: 20030713
  2. GASTER D [Concomitant]
  3. CEFOTIAM HYDROCHLORIDE [Concomitant]

REACTIONS (8)
  - ASCITES [None]
  - GASTRIC CANCER [None]
  - GASTRIC ULCER HAEMORRHAGE [None]
  - HAEMODIALYSIS [None]
  - NEPHRITIS INTERSTITIAL [None]
  - PLEURAL EFFUSION [None]
  - RENAL FAILURE ACUTE [None]
  - URINARY OCCULT BLOOD POSITIVE [None]
